FAERS Safety Report 19467680 (Version 1)
Quarter: 2021Q2

REPORT INFORMATION
  Report Type: Spontaneous
  Country: US (occurrence: US)
  Receive Date: 20210628
  Receipt Date: 20210628
  Transmission Date: 20210717
  Serious: Yes (Life-Threatening)
  Sender: FDA-Public Use
  Company Number: None

PATIENT
  Age: 91 Year
  Sex: Female
  Weight: 73.5 kg

DRUGS (8)
  1. MULTIHANCE [Suspect]
     Active Substance: GADOBENATE DIMEGLUMINE
     Indication: CONTRAST MEDIA DEPOSITION
     Dosage: ?          OTHER FREQUENCY:ONE TIME ONLY;?
     Route: 042
  2. PRESERVISION AREDS?2 VITAMIN [Concomitant]
  3. OMEPRAZOLE 20MG [Concomitant]
     Active Substance: OMEPRAZOLE
  4. WARFARIN 5MG [Concomitant]
     Active Substance: WARFARIN
  5. LIDOCAINE 5% PATCH [Concomitant]
     Active Substance: LIDOCAINE
  6. ALBUTEROL HFA INHALER [Concomitant]
     Active Substance: ALBUTEROL
  7. DILTIAZEMM 120MG [Concomitant]
  8. FUROSEMIDE 20MG [Concomitant]
     Active Substance: FUROSEMIDE

REACTIONS (1)
  - Anaphylactic reaction [None]

NARRATIVE: CASE EVENT DATE: 20210618
